FAERS Safety Report 5084304-8 (Version None)
Quarter: 2006Q3

REPORT INFORMATION
  Report Type: 
  Country: None (occurrence: None)
  Receive Date: 20060816
  Receipt Date: 20060801
  Transmission Date: 20061208
  Serious: Yes (Hospitalization)
  Sender: FDA-Public Use
  Company Number: ABX36-06-0392

PATIENT
  Age: 68 Year
  Sex: Male
  Weight: 89.8122 kg

DRUGS (3)
  1. ABRAXANE [Suspect]
     Indication: NON-SMALL CELL LUNG CANCER
     Dosage: 2 DOSES (600 MG) INTRAVENOUS
     Route: 042
     Dates: start: 20060101
  2. CARBOPLATIN [Suspect]
     Indication: NON-SMALL CELL LUNG CANCER
     Dosage: 2 DOSES (804 MG) INTRAVENOUS DRIP
     Route: 041
     Dates: start: 20060101
  3. AVASTIN [Suspect]
     Indication: NON-SMALL CELL LUNG CANCER
     Dosage: 2 DOSES (1472 MG) , INTRAVENOUS
     Route: 042
     Dates: start: 20060101

REACTIONS (11)
  - APTYALISM [None]
  - CONSTIPATION [None]
  - DECREASED APPETITE [None]
  - FEBRILE NEUTROPENIA [None]
  - HAEMATOCRIT DECREASED [None]
  - HAEMOGLOBIN DECREASED [None]
  - HYPOKALAEMIA [None]
  - HYPOMAGNESAEMIA [None]
  - PLATELET COUNT DECREASED [None]
  - WEIGHT DECREASED [None]
  - WHITE BLOOD CELL COUNT DECREASED [None]
